FAERS Safety Report 7055283-9 (Version None)
Quarter: 2010Q4

REPORT INFORMATION
  Report Type: 
  Country: None (occurrence: None)
  Receive Date: 20101021
  Receipt Date: 20101014
  Transmission Date: 20110411
  Serious: Yes (Disabling, Other)
  Sender: FDA-Public Use
  Company Number: NO-JNJFOC-20100908815

PATIENT
  Age: 70 Year
  Sex: Male

DRUGS (3)
  1. GALANTAMINE HYDROBROMIDE [Suspect]
     Indication: DEMENTIA
     Route: 065
  2. GALANTAMINE HYDROBROMIDE [Suspect]
     Route: 065
  3. CIPRAMIL [Concomitant]
     Route: 065

REACTIONS (5)
  - AGGRESSION [None]
  - DEMENTIA [None]
  - FALL [None]
  - HALLUCINATION [None]
  - SYNCOPE [None]
